FAERS Safety Report 7657305-0 (Version None)
Quarter: 2011Q3

REPORT INFORMATION
  Report Type: 
  Country: None (occurrence: None)
  Receive Date: 20110804
  Receipt Date: 20110726
  Transmission Date: 20111222
  Serious: Yes (Hospitalization, Other)
  Sender: FDA-Public Use
  Company Number: PHEH2009US16623

PATIENT
  Sex: Female
  Weight: 50.9 kg

DRUGS (13)
  1. GUAIFENESIN [Concomitant]
     Dosage: 100 MG/ 5 ML
  2. OMEPRAZOLE [Concomitant]
     Dosage: 20 MG, ONE CAPSULE BY MOUTH TWICE A DAY
  3. PREMARIN [Concomitant]
     Dosage: 0.625 MG, ONE TABLET BY MOUTH ONCE A DAY
  4. CALTRATE PLUS [Concomitant]
     Route: 048
  5. TYLENOL-500 [Concomitant]
  6. PREDNISONE [Concomitant]
     Route: 048
  7. EXJADE [Suspect]
     Indication: IRON OVERLOAD
     Dosage: 1250 MG, QD
  8. EXJADE [Suspect]
     Dosage: 1375 MG, QD
     Route: 048
     Dates: start: 20060101
  9. FOLIC ACID [Concomitant]
     Dosage: 1 MG, QD
  10. METOPROLOL TARTRATE [Concomitant]
     Dosage: 25 MG, ONE TABLET BY MOUTH TWICE A DAY
  11. VITAMIN E [Concomitant]
  12. EXJADE [Suspect]
     Dosage: 1250 MG
     Route: 048
     Dates: start: 20091027
  13. ASPIRIN [Concomitant]
     Route: 048

REACTIONS (9)
  - DEEP VEIN THROMBOSIS [None]
  - SYNCOPE [None]
  - GLOMERULAR FILTRATION RATE DECREASED [None]
  - RENAL IMPAIRMENT [None]
  - BLOOD CREATININE INCREASED [None]
  - BLOOD UREA INCREASED [None]
  - CLOSTRIDIUM DIFFICILE COLITIS [None]
  - TRANSIENT ISCHAEMIC ATTACK [None]
  - DEHYDRATION [None]
